FAERS Safety Report 20565969 (Version 2)
Quarter: 2022Q1

REPORT INFORMATION
  Report Type: Report from Study
  Country: MX (occurrence: MX)
  Receive Date: 20220308
  Receipt Date: 20220311
  Transmission Date: 20220423
  Serious: Yes (Death, Other)
  Sender: FDA-Public Use
  Company Number: MX-NOVARTISPH-NVSC2022MX053828

PATIENT
  Age: 84 Year
  Sex: Female
  Weight: 57 kg

DRUGS (2)
  1. EXFORGE HCT [Suspect]
     Active Substance: AMLODIPINE BESYLATE\HYDROCHLOROTHIAZIDE\VALSARTAN
     Indication: Hypertension
     Dosage: 1 DOSAGE FORM OF 5/12.5/160 MG, QD
     Route: 048
     Dates: start: 202108
  2. EXFORGE HCT [Suspect]
     Active Substance: AMLODIPINE BESYLATE\HYDROCHLOROTHIAZIDE\VALSARTAN
     Dosage: 1.5 DOSAGE FORM, ONE TABLET IN THE MORNING AND HALF A TABLET AT NIGHT
     Route: 048
     Dates: start: 20220113

REACTIONS (6)
  - Myocardial infarction [Fatal]
  - Respiratory arrest [Fatal]
  - Fall [Fatal]
  - Ankle fracture [Recovering/Resolving]
  - Off label use [Unknown]
  - Wrong technique in product usage process [Unknown]

NARRATIVE: CASE EVENT DATE: 20220113
